FAERS Safety Report 10233712 (Version 1)
Quarter: 2014Q2

REPORT INFORMATION
  Report Type: Spontaneous
  Country: IN (occurrence: IN)
  Receive Date: 20140612
  Receipt Date: 20140612
  Transmission Date: 20141212
  Serious: Yes (Hospitalization)
  Sender: FDA-Public Use
  Company Number: IN-WATSON-2014-12826

PATIENT
  Age: 48 Year
  Sex: Female

DRUGS (3)
  1. ANASTROZOLE (UNKNOWN) [Suspect]
     Indication: BREAST CANCER
     Dosage: 1 MG, DAILY
     Route: 065
  2. ZOLEDRONIC ACID [Concomitant]
     Indication: OSTEOPENIA
     Dosage: 4 MG IN 100 ML SOLUTION EVERY 6 MONTHS
     Route: 065
  3. CALCIUM [Concomitant]
     Indication: PRODUCT USED FOR UNKNOWN INDICATION
     Dosage: UNKNOWN
     Route: 065

REACTIONS (1)
  - Tardive dyskinesia [Not Recovered/Not Resolved]
